FAERS Safety Report 6645441-7 (Version None)
Quarter: 2010Q1

REPORT INFORMATION
  Report Type: 
  Country: None (occurrence: None)
  Receive Date: 20100322
  Receipt Date: 20100317
  Transmission Date: 20100710
  Serious: Yes (Death)
  Sender: FDA-Public Use
  Company Number: NZ-ASTRAZENECA-2010SE11798

PATIENT
  Age: 29650 Day
  Sex: Male

DRUGS (5)
  1. QUETIAPINE [Suspect]
     Indication: DEMENTIA
     Route: 048
     Dates: start: 20060911
  2. PAROXETINE HCL [Concomitant]
     Indication: DEPRESSION
     Route: 048
     Dates: start: 20060922
  3. SALBUTAMOL [Concomitant]
     Indication: CHRONIC OBSTRUCTIVE PULMONARY DISEASE
     Route: 055
  4. PANTOPRAZOLE [Concomitant]
     Route: 048
  5. ZOPICLONE [Concomitant]
     Route: 048
     Dates: start: 20060915

REACTIONS (2)
  - NEUROLEPTIC MALIGNANT SYNDROME [None]
  - PNEUMONIA [None]
